FAERS Safety Report 25955096 (Version 2)
Quarter: 2025Q4

REPORT INFORMATION
  Report Type: Spontaneous
  Country: KR (occurrence: KR)
  Receive Date: 20251024
  Receipt Date: 20251216
  Transmission Date: 20260117
  Serious: Yes (Hospitalization)
  Sender: SAMSUNG BIOEPIS
  Company Number: KR-SAMSUNG BIOEPIS-SB-2025-34838

PATIENT
  Age: 61 Year
  Sex: Female
  Weight: 85.8 kg

DRUGS (23)
  1. TRASTUZUMAB [Suspect]
     Active Substance: TRASTUZUMAB
     Indication: Gallbladder cancer
     Route: 042
     Dates: start: 20250701, end: 20251014
  2. TRASTUZUMAB [Suspect]
     Active Substance: TRASTUZUMAB
     Route: 042
     Dates: start: 20251015, end: 20251205
  3. NIVOLUMAB [Suspect]
     Active Substance: NIVOLUMAB
     Indication: Gallbladder cancer
     Route: 042
     Dates: start: 20250701, end: 20251014
  4. NIVOLUMAB [Suspect]
     Active Substance: NIVOLUMAB
     Route: 042
     Dates: start: 20251015, end: 20251205
  5. GEMCITABINE [Suspect]
     Active Substance: GEMCITABINE
     Indication: Gallbladder cancer
     Route: 042
     Dates: start: 20250701, end: 20251014
  6. GEMCITABINE [Suspect]
     Active Substance: GEMCITABINE
     Route: 042
     Dates: start: 20251015
  7. GEMCITABINE [Suspect]
     Active Substance: GEMCITABINE
     Route: 042
     Dates: start: 20251205, end: 20251205
  8. CISPLATIN [Suspect]
     Active Substance: CISPLATIN
     Indication: Gallbladder cancer
     Route: 042
     Dates: start: 20250701, end: 20251014
  9. CISPLATIN [Suspect]
     Active Substance: CISPLATIN
     Route: 042
     Dates: start: 20251015, end: 20251205
  10. NORZYME [Concomitant]
     Indication: Product used for unknown indication
     Dosage: CAPSULE;
     Dates: start: 20241112
  11. MAGNESIUM OXIDE [Concomitant]
     Active Substance: MAGNESIUM OXIDE
     Indication: Product used for unknown indication
     Dosage: CAPSULE
     Dates: start: 20241112
  12. Fexuclue [Concomitant]
     Indication: Product used for unknown indication
     Dates: start: 20240318
  13. CNU [Concomitant]
     Indication: Product used for unknown indication
     Dosage: CAPSULE;
     Dates: start: 20250211
  14. ARONAMIN C PLUS [Concomitant]
     Indication: Product used for unknown indication
     Dates: start: 20250211
  15. GASTER [Concomitant]
     Active Substance: FAMOTIDINE
     Indication: Product used for unknown indication
     Dosage: 20MG/10ML
     Dates: start: 20250701
  16. ALOXI [Concomitant]
     Active Substance: PALONOSETRON HYDROCHLORIDE
     Indication: Product used for unknown indication
     Dosage: 0.25 MG/5 ML
     Dates: start: 20250701
  17. Laevan Forte [Concomitant]
     Indication: Product used for unknown indication
     Dosage: 0.25 MG/5 ML
     Route: 061
     Dates: start: 20241015
  18. HANMI UREA [Concomitant]
     Indication: Product used for unknown indication
     Dosage: 200 MG 50 G PRN
     Route: 061
     Dates: start: 20250709
  19. ULTRACET [Concomitant]
     Active Substance: ACETAMINOPHEN\TRAMADOL HYDROCHLORIDE
     Indication: Product used for unknown indication
     Dates: start: 20250716
  20. Dulackhan [Concomitant]
     Indication: Product used for unknown indication
     Dosage: 15ML
     Dates: start: 20250716
  21. PENIRAMIN [Concomitant]
     Indication: Product used for unknown indication
     Dates: start: 20250806
  22. FILGRASTIM [Concomitant]
     Active Substance: FILGRASTIM
     Indication: Product used for unknown indication
     Dosage: 300 MCG/1.2 ML;
     Dates: start: 20250828
  23. ALGOGEN [Concomitant]
     Indication: Product used for unknown indication
     Dosage: SOLUTION;
     Dates: start: 20250929

REACTIONS (2)
  - Anaemia [Recovering/Resolving]
  - Product use in unapproved indication [Unknown]

NARRATIVE: CASE EVENT DATE: 20251013
